FAERS Safety Report 9786752 (Version 1)
Quarter: 2013Q4

REPORT INFORMATION
  Report Type: Spontaneous
  Country: US (occurrence: US)
  Receive Date: 20131227
  Receipt Date: 20131227
  Transmission Date: 20140711
  Serious: Yes (Other)
  Sender: FDA-Public Use
  Company Number: US-BAXTER-2013BAX051620

PATIENT
  Sex: 0

DRUGS (1)
  1. GAMMAGARD LIQUID [Suspect]
     Indication: RENAL TRANSPLANT
     Route: 065

REACTIONS (2)
  - Respiratory tract irritation [Recovered/Resolved]
  - Pruritus [Recovered/Resolved]
